FAERS Safety Report 5619435-4 (Version None)
Quarter: 2008Q1

REPORT INFORMATION
  Report Type: 
  Country: None (occurrence: None)
  Receive Date: 20080109
  Receipt Date: 20070405
  Transmission Date: 20080703
  Serious: Yes (Disabling, Other)
  Sender: FDA-Public Use
  Company Number: WAES 0704USA00935

PATIENT
  Age: 50 Year
  Sex: Female

DRUGS (4)
  1. ZETIA [Suspect]
     Indication: BLOOD CHOLESTEROL INCREASED
     Dosage: 10 MG, DAILY, PO
     Route: 048
     Dates: start: 20050401
  2. AMBIEN [Concomitant]
  3. CRESTOR [Concomitant]
  4. ASPIRIN [Concomitant]

REACTIONS (1)
  - ANGIOEDEMA [None]
